FAERS Safety Report 25661820 (Version 1)
Quarter: 2025Q3

REPORT INFORMATION
  Report Type: Report from Study
  Country: EU (occurrence: EU)
  Receive Date: 20250809
  Receipt Date: 20250809
  Transmission Date: 20251020
  Serious: Yes (Death)
  Sender: CELLTRION
  Company Number: EU-ROCHE-3446847

PATIENT

DRUGS (9)
  1. BEVACIZUMAB [Suspect]
     Active Substance: BEVACIZUMAB
     Indication: Hepatocellular carcinoma
     Route: 065
     Dates: start: 20230531
  2. ATEZOLIZUMAB [Suspect]
     Active Substance: ATEZOLIZUMAB
     Indication: Hepatocellular carcinoma
     Route: 042
     Dates: start: 20230531
  3. SPIRONOLACTONE [Concomitant]
     Active Substance: SPIRONOLACTONE
  4. HERBALS\SILYBUM MARIANUM WHOLE [Concomitant]
     Active Substance: HERBALS\SILYBUM MARIANUM WHOLE
  5. FUROSEMIDE [Concomitant]
     Active Substance: FUROSEMIDE
  6. CARVEDILOL [Concomitant]
     Active Substance: CARVEDILOL
     Dates: start: 20230529
  7. URSODIOL [Concomitant]
     Active Substance: URSODIOL
  8. INSULIN NOS [Concomitant]
     Active Substance: INSULIN NOS
     Dates: start: 20240329, end: 20240329
  9. DEXTROSE [Concomitant]
     Active Substance: DEXTROSE MONOHYDRATE
     Dates: start: 20240329, end: 20240329

REACTIONS (5)
  - Death [Fatal]
  - Bilirubin conjugated increased [Not Recovered/Not Resolved]
  - Blood creatinine increased [Recovering/Resolving]
  - Proteinuria [Recovering/Resolving]
  - Intentional product use issue [Unknown]

NARRATIVE: CASE EVENT DATE: 20231004
